FAERS Safety Report 9322026 (Version 1)
Quarter: 2013Q2

REPORT INFORMATION
  Report Type: Spontaneous
  Country: US (occurrence: None)
  Receive Date: 20130530
  Receipt Date: 20130530
  Transmission Date: 20140414
  Serious: No
  Sender: FDA-Public Use
  Company Number: None

PATIENT
  Age: 69 Year
  Sex: Male

DRUGS (1)
  1. STIVARGA [Suspect]
     Indication: COLON CANCER
     Dosage: 40MG QD PO
     Route: 048
     Dates: start: 20130425, end: 20130502

REACTIONS (3)
  - Stomatitis [None]
  - Nausea [None]
  - Oesophagitis [None]
